FAERS Safety Report 6577722-X (Version None)
Quarter: 2010Q1

REPORT INFORMATION
  Report Type: 
  Country: None (occurrence: None)
  Receive Date: 20100211
  Receipt Date: 20100204
  Transmission Date: 20100710
  Serious: Yes (Death, Life-Threatening, Hospitalization, Other)
  Sender: FDA-Public Use
  Company Number: GB-BAYER-200610225BNE

PATIENT
  Age: 41 Year
  Sex: Male
  Weight: 70 kg

DRUGS (18)
  1. CIPROFLOXACIN [Suspect]
     Indication: PNEUMOCOCCAL SEPSIS
     Dosage: TOTAL DAILY DOSE: 800 MG
     Route: 042
     Dates: start: 20051223, end: 20051230
  2. METRONIDAZOLE [Suspect]
     Indication: PNEUMONIA ASPIRATION
     Dosage: UNIT DOSE: 500 MG
     Route: 042
     Dates: start: 20051221, end: 20051230
  3. VANCOMYCIN [Concomitant]
     Dosage: TOTAL DAILY DOSE: 2 G
     Route: 042
     Dates: start: 20051226, end: 20060110
  4. LAMOTRIGINE [Concomitant]
  5. CLONAZEPAM [Concomitant]
     Dosage: TOTAL DAILY DOSE: 4 MG
  6. PARACETAMOL [Concomitant]
     Route: 065
  7. LANSOPRAZOLE [Concomitant]
     Route: 048
  8. AMITRIPTYLINE HCL [Concomitant]
     Route: 065
  9. BACLOFEN [Concomitant]
     Route: 065
  10. AUGMENTIN [Concomitant]
     Indication: PNEUMONIA ASPIRATION
     Dosage: TOTAL DAILY DOSE: 3.6 G
     Route: 042
     Dates: start: 20051221
  11. GENTAMICIN [Concomitant]
     Route: 042
  12. LACTULOSE [Concomitant]
  13. LORAZEPAM [Concomitant]
     Dosage: TOTAL DAILY DOSE: 4 MG
  14. SENNA [Concomitant]
  15. CORSODYL [Concomitant]
  16. CORSODYL [Concomitant]
  17. AQUEOUS CREAM [Concomitant]
     Route: 061
  18. HYDROCORTISONE [Concomitant]
     Route: 061

REACTIONS (5)
  - DEATH [None]
  - DISSEMINATED INTRAVASCULAR COAGULATION [None]
  - LIVER FUNCTION TEST ABNORMAL [None]
  - MELAENA [None]
  - PANCYTOPENIA [None]
